FAERS Safety Report 19950918 (Version 2)
Quarter: 2021Q4

REPORT INFORMATION
  Report Type: Report from Study
  Country: US (occurrence: US)
  Receive Date: 20211013
  Receipt Date: 20211018
  Transmission Date: 20220303
  Serious: Yes (Hospitalization)
  Sender: FDA-Public Use
  Company Number: US-PFIZER INC-202101295915

PATIENT
  Age: 54 Year
  Sex: Female
  Weight: 71 kg

DRUGS (21)
  1. FLUDARABINE PHOSPHATE [Suspect]
     Active Substance: FLUDARABINE PHOSPHATE
     Indication: Follicular lymphoma
     Dosage: 60 MG, 1X/DAY
     Route: 042
     Dates: start: 20210408, end: 20210408
  2. FLUDARABINE PHOSPHATE [Suspect]
     Active Substance: FLUDARABINE PHOSPHATE
     Dosage: 60 MG, 1X/DAY
     Route: 042
     Dates: start: 20210409, end: 20210409
  3. FLUDARABINE PHOSPHATE [Suspect]
     Active Substance: FLUDARABINE PHOSPHATE
     Dosage: 60 MG, 1X/DAY
     Route: 042
     Dates: start: 20210410, end: 20210410
  4. CYCLOPHOSPHAMIDE [Suspect]
     Active Substance: CYCLOPHOSPHAMIDE
     Indication: Follicular lymphoma
     Dosage: 600 MG, 1X/DAY, INJECTION FOR INFUSION
     Route: 042
     Dates: start: 20210408, end: 20210408
  5. CYCLOPHOSPHAMIDE [Suspect]
     Active Substance: CYCLOPHOSPHAMIDE
     Dosage: 600 MG, 1X/DAY, INJECTION FOR INFUSION
     Route: 042
     Dates: start: 20210409, end: 20210409
  6. CYCLOPHOSPHAMIDE [Suspect]
     Active Substance: CYCLOPHOSPHAMIDE
     Dosage: 600 MG, 1X/DAY, INJECTION FOR INFUSION
     Route: 042
     Dates: start: 20210410, end: 20210410
  7. LISOCABTAGENE MARALEUCEL [Suspect]
     Active Substance: LISOCABTAGENE MARALEUCEL
     Indication: Follicular lymphoma
     Dosage: 100 X 10^6 CAR PLUS T CELLS X ONCE, INJECTION FOR INFUSION
     Route: 042
     Dates: start: 20210413, end: 20210413
  8. ACETAMINOPHEN [Concomitant]
     Active Substance: ACETAMINOPHEN
     Indication: Prophylaxis
     Dosage: 650 MG, ONCE
     Route: 048
     Dates: start: 20210413, end: 20210413
  9. ACETAMINOPHEN [Concomitant]
     Active Substance: ACETAMINOPHEN
     Dosage: 650 MG, ONCE
     Route: 048
     Dates: start: 20210428, end: 20210428
  10. ACYCLOVIR [Concomitant]
     Active Substance: ACYCLOVIR
     Indication: Prophylaxis
     Dosage: 400 MG, 2X/DAY
     Route: 048
     Dates: start: 20210125
  11. AMOXICILLIN\CLAVULANIC ACID [Concomitant]
     Active Substance: AMOXICILLIN\CLAVULANIC ACID
     Indication: Prophylaxis
     Dosage: 875 MG, 2X/DAY
     Route: 048
     Dates: start: 20210501, end: 20210502
  12. BACTRIM DS [Concomitant]
     Active Substance: SULFAMETHOXAZOLE\TRIMETHOPRIM
     Indication: Prophylaxis
     Dosage: [SULFAMETHOXAZOLE 800 MG]/ [TRIMETHOPRIM 160 MG], 1 TABLET X 3 X 1 WEEKS
     Route: 048
     Dates: start: 20210407
  13. CLARITIN [Concomitant]
     Active Substance: LORATADINE
     Indication: Prophylaxis
     Dosage: 10 MG, 1X/DAY
     Route: 048
     Dates: start: 20210413, end: 20210420
  14. DIPHENHYDRAMINE [Concomitant]
     Active Substance: DIPHENHYDRAMINE
     Indication: Prophylaxis
     Dosage: 25 MG, ONCE
     Route: 042
     Dates: start: 20210413, end: 20210413
  15. GABAPENTIN [Concomitant]
     Active Substance: GABAPENTIN
     Indication: Prophylaxis
     Dosage: 300 MG, 1X/DAY
     Route: 048
     Dates: start: 20210112, end: 20210423
  16. MAGNESIUM L-THREONATE [Concomitant]
     Indication: Supplementation therapy
     Dosage: 1 CAPSULE
     Route: 048
     Dates: start: 20210429
  17. MICAFUNGIN SODIUM [Concomitant]
     Active Substance: MICAFUNGIN SODIUM
     Indication: Prophylaxis
     Dosage: 100 MG, 1X/DAY
     Route: 042
     Dates: start: 20210429, end: 20210501
  18. ONDANSETRON [Concomitant]
     Active Substance: ONDANSETRON
     Indication: Prophylaxis
     Dosage: 8 MG, 3X/DAY
     Route: 048
     Dates: start: 20210407, end: 20210504
  19. PALONOSETRON. [Concomitant]
     Active Substance: PALONOSETRON HYDROCHLORIDE
     Indication: Prophylaxis
     Dosage: 0.25 MG, 1X 2 DAYS
     Route: 042
     Dates: start: 20210408, end: 20210410
  20. PROCHLORPERAZINE [Concomitant]
     Active Substance: PROCHLORPERAZINE
     Indication: Prophylaxis
     Dosage: 10 MG, ONCE
     Route: 048
     Dates: start: 20210410, end: 20210504
  21. VITAMIN D3 [Concomitant]
     Active Substance: CHOLECALCIFEROL
     Indication: Supplementation therapy
     Dosage: 5000 IU, 1X/DAY
     Route: 048
     Dates: start: 20140204

REACTIONS (1)
  - Febrile neutropenia [Recovered/Resolved]

NARRATIVE: CASE EVENT DATE: 20210428
